FAERS Safety Report 7899044-7 (Version None)
Quarter: 2011Q4

REPORT INFORMATION
  Report Type: 
  Country: None (occurrence: None)
  Receive Date: 20111107
  Receipt Date: 20111028
  Transmission Date: 20120403
  Serious: Yes (Other)
  Sender: FDA-Public Use
  Company Number: US-ASTRAZENECA-2011SE63312

PATIENT
  Age: 33 Year
  Sex: Male
  Weight: 87.1 kg

DRUGS (7)
  1. SEROQUEL [Suspect]
     Indication: BIPOLAR DISORDER
     Route: 048
  2. SEROQUEL [Suspect]
     Route: 048
  3. SEROQUEL [Suspect]
     Route: 048
     Dates: end: 20111001
  4. SEROQUEL [Suspect]
     Indication: DEPRESSION
     Route: 048
  5. SEROQUEL [Suspect]
     Route: 048
     Dates: end: 20111001
  6. CLONOPIN [Concomitant]
  7. SEROQUEL [Suspect]
     Route: 048

REACTIONS (11)
  - DRUG DOSE OMISSION [None]
  - WITHDRAWAL SYNDROME [None]
  - HEADACHE [None]
  - GRAND MAL CONVULSION [None]
  - AGITATION [None]
  - NAUSEA [None]
  - DECREASED APPETITE [None]
  - DEPRESSION [None]
  - ABDOMINAL PAIN UPPER [None]
  - INSOMNIA [None]
  - DIARRHOEA [None]
